FAERS Safety Report 7934900-2 (Version None)
Quarter: 2011Q4

REPORT INFORMATION
  Report Type: 
  Country: None (occurrence: None)
  Receive Date: 20111118
  Receipt Date: 20111110
  Transmission Date: 20120403
  Serious: Yes (Other)
  Sender: FDA-Public Use
  Company Number: 2011-NL-00354NL

PATIENT
  Sex: Male

DRUGS (16)
  1. PANTOPRAZOL (PANTOPRAZOLE SODIUM SESQUIHYDRATE) (PANTOPRAZOLE SODIUM S [Concomitant]
  2. OXAZEPAM (OXAZEPAM) (OXAZEPAM) [Concomitant]
  3. SPIRIVA [Suspect]
     Indication: CHRONIC OBSTRUCTIVE PULMONARY DISEASE
     Dosage: 2 PUF (1 PUF, 1DD2)
     Route: 055
  4. VESICARE 9SOLIFENACIN SUCCINATE) (SOLIFENACIN SUCCINATE) [Concomitant]
  5. BERODUAL DOSISAEROSOL (BERODUAL) (DUOVENT) (AEM) [Suspect]
     Indication: CHRONIC OBSTRUCTIVE PULMONARY DISEASE
     Dosage: 8 PUF (1 PUF, 4 DD2)
     Route: 055
  6. CALCICHEW (CALCIUM CARBONATE) (CALCIUM CARBONATE) [Concomitant]
  7. FUROSEMIDE [Concomitant]
  8. BUDESONIDE [Concomitant]
  9. METOPROLOL SUCCINAAT (METOPROLOL SUCCINATE) (METOPROLOL SUCCINATE) [Concomitant]
  10. PREDNISON (PREDNISON) (PREDNISONE) [Concomitant]
  11. VATOUD (CLOPIDOGREL BESYLATE) (CLOPIDOGREL BESYLATE) [Concomitant]
  12. APROVEL (IRBESARTAN) (IRBESARTAN) [Concomitant]
  13. FORADIL (FORMOTEROL FUMARATE) (FORMOTEROL FUMARATE) [Concomitant]
  14. BISOLBRUIS (PULMOVENT) (ACETYLCYSTEINE) (ACETYLCYSTEINE) (VERUM) [Suspect]
     Dosage: NR (600 MG, AS REQUIRED)
  15. ACTONEL (RISEDRONATE SODIUM) (RISEDRONATE SODIUM) [Concomitant]
  16. DOXYCYCLINE [Concomitant]

REACTIONS (2)
  - MYOCARDIAL INFARCTION [None]
  - PRODUCT TASTE ABNORMAL [None]
